FAERS Safety Report 7156391-4 (Version None)
Quarter: 2010Q4

REPORT INFORMATION
  Report Type: 
  Country: None (occurrence: None)
  Receive Date: 20101214
  Receipt Date: 20101207
  Transmission Date: 20110411
  Serious: Yes (Congenital Anomaly, Other)
  Sender: FDA-Public Use
  Company Number: US-ROCHE-730917

PATIENT

DRUGS (3)
  1. SAQUINAVIR [Suspect]
     Indication: PROPHYLAXIS AGAINST HIV INFECTION
     Route: 064
  2. NORVIR [Suspect]
     Indication: PROPHYLAXIS AGAINST HIV INFECTION
     Route: 064
  3. TRUVADA [Suspect]
     Indication: PROPHYLAXIS AGAINST HIV INFECTION
     Route: 064

REACTIONS (5)
  - MATERNAL DRUGS AFFECTING FOETUS [None]
  - POLYHYDRAMNIOS [None]
  - PREMATURE BABY [None]
  - SPINE MALFORMATION [None]
  - TRACHEO-OESOPHAGEAL FISTULA [None]
